FAERS Safety Report 9913528 (Version 1)
Quarter: 2014Q1

REPORT INFORMATION
  Report Type: Spontaneous
  Country: GB (occurrence: None)
  Receive Date: 20140218
  Receipt Date: 20140218
  Transmission Date: 20141002
  Serious: Yes (Hospitalization)
  Sender: FDA-Public Use
  Company Number: FK201400512

PATIENT
  Age: 59 Year
  Sex: Female

DRUGS (3)
  1. DEXAMETHASONE INJECTION (MANUFACTURER UNKNOWN) (DEXAMETHASONE SODIUM PHOSPHATE) (DEXAMETHASONE SODIUM PHOSPHATE) [Suspect]
     Indication: PLASMA CELL MYELOMA
  2. CYCLOPHOSPHAMIDE (MANUFACTURER UNKNOWN) (CYCLOPHOSPHAMIDE) (CYCLOPHOSPHAMIDE) [Suspect]
     Indication: PLASMA CELL MYELOMA
  3. THALIDOMIDE [Suspect]
     Indication: PLASMA CELL MYELOMA

REACTIONS (5)
  - Duodenal obstruction [None]
  - Strongyloidiasis [None]
  - Supraventricular tachycardia [None]
  - Hypoalbuminaemia [None]
  - Normochromic normocytic anaemia [None]
